FAERS Safety Report 9088607 (Version 1)
Quarter: 2013Q1

REPORT INFORMATION
  Report Type: Spontaneous
  Country: IT (occurrence: IT)
  Receive Date: 20130201
  Receipt Date: 20130201
  Transmission Date: 20140127
  Serious: Yes (Hospitalization)
  Sender: FDA-Public Use
  Company Number: PHHY2013IT009248

PATIENT
  Sex: Female

DRUGS (5)
  1. ZOMETA [Suspect]
     Indication: PLASMA CELL MYELOMA
     Dosage: 1 DF, CYCLIC
     Route: 042
     Dates: start: 20090101, end: 20120901
  2. AMOXICILINA+ACIDO CLAVUL.RATIOPHARM/00852501/ [Concomitant]
     Dosage: 2 G, DAILY
  3. METRONIDAZOLE [Concomitant]
     Dosage: 500 MG, DAILY
  4. CHLORHEXIDINE [Concomitant]
  5. POVIDONE-IODINE [Concomitant]

REACTIONS (1)
  - Osteonecrosis of jaw [Not Recovered/Not Resolved]
